FAERS Safety Report 5763403-9 (Version None)
Quarter: 2008Q2

REPORT INFORMATION
  Report Type: 
  Country: None (occurrence: None)
  Receive Date: 20080604
  Receipt Date: 20080604
  Transmission Date: 20081010
  Serious: Yes (Other)
  Sender: FDA-Public Use
  Company Number: None

PATIENT
  Sex: Male
  Weight: 68.0396 kg

DRUGS (1)
  1. SINGULAIR [Suspect]
     Indication: ACUTE SINUSITIS
     Dosage: 1 TABLET IN THE EVENING PO
     Route: 048
     Dates: start: 20060922, end: 20080521

REACTIONS (3)
  - DEPRESSION [None]
  - EDUCATIONAL PROBLEM [None]
  - FATIGUE [None]
